FAERS Safety Report 5816692-6 (Version None)
Quarter: 2008Q3

REPORT INFORMATION
  Report Type: 
  Country: None (occurrence: None)
  Receive Date: 20080721
  Receipt Date: 20080207
  Transmission Date: 20090109
  Serious: No
  Sender: FDA-Public Use
  Company Number: US-BRISTOL-MYERS SQUIBB COMPANY-14068720

PATIENT
  Sex: Female

DRUGS (2)
  1. ESTRACE [Suspect]
  2. DETROL LA [Suspect]

REACTIONS (4)
  - ABDOMINAL PAIN UPPER [None]
  - ALOPECIA [None]
  - DRY MOUTH [None]
  - FATIGUE [None]
